FAERS Safety Report 10035310 (Version 2)
Quarter: 2014Q2

REPORT INFORMATION
  Report Type: Spontaneous
  Country: FR (occurrence: None)
  Receive Date: 20140321
  Receipt Date: 20140606
  Transmission Date: 20141212
  Serious: Yes (Death)
  Sender: FDA-Public Use
  Company Number: 2014FR00208

PATIENT
  Sex: 0

DRUGS (4)
  1. GEMCITABINE [Suspect]
     Indication: GERM CELL CANCER METASTATIC
     Dosage: DAY 1 AND 5 REPEATED EVERY 3 WEEKS FOR 4 CYCLES
  2. IFOSFAMIDE [Suspect]
     Indication: GERM CELL CANCER METASTATIC
     Dosage: DAY 1-5, EVERY 3 WEEKS FOR 4 CYCLES
  3. CISPLATIN [Suspect]
     Indication: GERM CELL CANCER METASTATIC
     Dosage: DAY 1-5, REPEATED EVERY 3 WEEKS FOR 4 CYCLES
  4. G CSF [Suspect]
     Indication: GERM CELL CANCER METASTATIC
     Dosage: DAY 7-15, REPEATED EVERY 3 WEEKS FOR 4 CYCLES?

REACTIONS (3)
  - Malignant neoplasm progression [None]
  - Toxicity to various agents [None]
  - Germ cell cancer metastatic [None]
